FAERS Safety Report 7638819-6 (Version None)
Quarter: 2011Q3

REPORT INFORMATION
  Report Type: 
  Country: None (occurrence: None)
  Receive Date: 20110727
  Receipt Date: 20110718
  Transmission Date: 20111222
  Serious: Yes (Other)
  Sender: FDA-Public Use
  Company Number: US-ROCHE-791359

PATIENT
  Age: 14 Year
  Sex: Female

DRUGS (4)
  1. OSELTAMIVIR [Suspect]
     Indication: H1N1 INFLUENZA
     Route: 065
     Dates: start: 20091013, end: 20091016
  2. OSELTAMIVIR [Suspect]
     Route: 065
     Dates: start: 20091016, end: 20091023
  3. ZANAMIVIR [Concomitant]
     Indication: PATHOGEN RESISTANCE
     Route: 042
  4. OSELTAMIVIR [Suspect]
     Route: 065
     Dates: start: 20091101, end: 20091114

REACTIONS (2)
  - DRUG INEFFECTIVE [None]
  - PATHOGEN RESISTANCE [None]
